FAERS Safety Report 16257189 (Version 1)
Quarter: 2019Q2

REPORT INFORMATION
  Report Type: Spontaneous
  Country: SE (occurrence: SE)
  Receive Date: 20190430
  Receipt Date: 20190430
  Transmission Date: 20190711
  Serious: Yes (Hospitalization)
  Sender: FDA-Public Use
  Company Number: SE-PFIZER INC-2019182628

PATIENT
  Sex: Female

DRUGS (4)
  1. STESOLID [Suspect]
     Active Substance: DIAZEPAM
     Dosage: 15 MG, UNK
     Route: 048
     Dates: start: 20131026, end: 20131026
  2. SEROQUEL [Suspect]
     Active Substance: QUETIAPINE FUMARATE
     Dosage: 100 MG, UNK
     Route: 048
     Dates: start: 20131026, end: 20131026
  3. XANOR [Suspect]
     Active Substance: ALPRAZOLAM
     Dosage: UNK (4 XANOR,0,5)
     Route: 048
     Dates: start: 20131026, end: 20131026
  4. DIMOR [Suspect]
     Active Substance: LOPERAMIDE
     Dosage: 20 MG, UNK
     Route: 048
     Dates: start: 20131026, end: 20131026

REACTIONS (2)
  - Intentional overdose [Unknown]
  - Intentional self-injury [Unknown]

NARRATIVE: CASE EVENT DATE: 20131026
